FAERS Safety Report 12561929 (Version 1)
Quarter: 2016Q3

REPORT INFORMATION
  Report Type: Spontaneous
  Country: US (occurrence: US)
  Receive Date: 20160715
  Receipt Date: 20160715
  Transmission Date: 20161109
  Serious: Yes (Other)
  Sender: FDA-Public Use
  Company Number: US-JAZZ-2016-US-006550

PATIENT
  Age: 49 Year
  Sex: Female

DRUGS (35)
  1. MUCINEX [Concomitant]
     Active Substance: GUAIFENESIN
  2. CIPRO [Concomitant]
     Active Substance: CIPROFLOXACIN HYDROCHLORIDE
  3. PROVIGIL [Concomitant]
     Active Substance: MODAFINIL
  4. VIVELLE-DOT [Concomitant]
     Active Substance: ESTRADIOL
  5. FLEXERIL [Concomitant]
     Active Substance: CYCLOBENZAPRINE HYDROCHLORIDE
  6. FIORICET [Concomitant]
     Active Substance: ACETAMINOPHEN\BUTALBITAL\CAFFEINE
  7. PHENTERMINE. [Concomitant]
     Active Substance: PHENTERMINE
  8. L-5-METHYLTETRAHYDROFOLATE [Concomitant]
  9. VYTORIN [Concomitant]
     Active Substance: EZETIMIBE\SIMVASTATIN
  10. MEDROL [Concomitant]
     Active Substance: METHYLPREDNISOLONE
  11. ALBUTEROL SULFATE. [Concomitant]
     Active Substance: ALBUTEROL SULFATE
  12. PREVACID [Concomitant]
     Active Substance: LANSOPRAZOLE
  13. FLUCONAZOLE. [Concomitant]
     Active Substance: FLUCONAZOLE
  14. GINGER. [Concomitant]
     Active Substance: GINGER
  15. XYREM [Suspect]
     Active Substance: SODIUM OXYBATE
     Indication: NARCOLEPSY
     Dosage: 4.5 G, BID
     Route: 048
     Dates: start: 201012
  16. PROGESTERONE. [Concomitant]
     Active Substance: PROGESTERONE
  17. ADDERALL [Concomitant]
     Active Substance: AMPHETAMINE ASPARTATE\AMPHETAMINE SULFATE\DEXTROAMPHETAMINE SACCHARATE\DEXTROAMPHETAMINE SULFATE
  18. ALA [Concomitant]
  19. PROSCAR [Concomitant]
     Active Substance: FINASTERIDE
  20. ZOFRAN [Concomitant]
     Active Substance: ONDANSETRON HYDROCHLORIDE
  21. CHROMIUM [Concomitant]
     Active Substance: CHROMIC CHLORIDE\CHROMIUM
  22. HYDROCODONE / IBUPROFEN [Concomitant]
     Active Substance: HYDROCODONE BITARTRATE\IBUPROFEN
  23. ASPIRIN. [Concomitant]
     Active Substance: ASPIRIN
  24. AMITRIPTYLINE HCL [Concomitant]
     Active Substance: AMITRIPTYLINE
  25. CYCLOBENZAPRINE [Concomitant]
     Active Substance: CYCLOBENZAPRINE
  26. FIORINAL [Concomitant]
     Active Substance: ASPIRIN\BUTALBITAL\CAFFEINE
  27. UBIQUINOL BIOACTIVE [Concomitant]
  28. VYVANSE [Concomitant]
     Active Substance: LISDEXAMFETAMINE DIMESYLATE
  29. ACETYL L-CARNITINE [Concomitant]
     Active Substance: ACETYLCARNITINE
  30. NIACIN. [Concomitant]
     Active Substance: NIACIN
  31. VITAMIN D3 [Concomitant]
     Active Substance: CHOLECALCIFEROL
  32. AMOXICILLIN. [Concomitant]
     Active Substance: AMOXICILLIN
  33. CELEBREX [Concomitant]
     Active Substance: CELECOXIB
  34. CYANOCOBALAMIN. [Concomitant]
     Active Substance: CYANOCOBALAMIN
  35. NEURONTIN [Concomitant]
     Active Substance: GABAPENTIN

REACTIONS (1)
  - Diverticulitis [Recovered/Resolved]

NARRATIVE: CASE EVENT DATE: 20160404
